FAERS Safety Report 5452783-X (Version None)
Quarter: 2007Q3

REPORT INFORMATION
  Report Type: 
  Country: None (occurrence: None)
  Receive Date: 20070914
  Receipt Date: 20070907
  Transmission Date: 20080115
  Serious: Yes (Other)
  Sender: FDA-Public Use
  Company Number: FR-ELI_LILLY_AND_COMPANY-FR200707004001

PATIENT
  Age: 79 Year
  Sex: Female

DRUGS (4)
  1. FORTEO [Suspect]
     Indication: OSTEOPOROSIS
     Dosage: 20 UG, DAILY (1/D)
     Route: 058
     Dates: start: 20061024
  2. IRBESARTAN [Concomitant]
     Indication: HYPERTENSION
     Route: 048
  3. IMOVANE [Concomitant]
     Dosage: 1 D/F, DAILY (1/D)
     Route: 048
  4. EUPANTOL [Concomitant]
     Indication: OESOPHAGITIS
     Dosage: 1 D/F, DAILY (1/D)
     Route: 048

REACTIONS (1)
  - CATARACT [None]
